FAERS Safety Report 20169801 (Version 2)
Quarter: 2023Q1

REPORT INFORMATION
  Report Type: Report from Study
  Country: DE (occurrence: DE)
  Receive Date: 20211210
  Receipt Date: 20230309
  Transmission Date: 20230417
  Serious: Yes (Hospitalization, Other)
  Sender: FDA-Public Use
  Company Number: DE-JNJFOC-20181211218

PATIENT
  Age: 4 Decade
  Sex: Female

DRUGS (2)
  1. SIMPONI [Suspect]
     Active Substance: GOLIMUMAB
     Indication: Axial spondyloarthritis
     Route: 058
     Dates: end: 20220812
  2. IBUPROFEN [Concomitant]
     Active Substance: IBUPROFEN
     Dosage: 800 MG ON 1 DAY OF THE WEEK(QW)
     Dates: start: 20210315

REACTIONS (8)
  - Arrhythmia [Unknown]
  - Palpitations [Unknown]
  - Urinary tract infection [Unknown]
  - Headache [Unknown]
  - Abdominal discomfort [Unknown]
  - Influenza like illness [Unknown]
  - Oral candidiasis [Unknown]
  - Vaginal infection [Unknown]

NARRATIVE: CASE EVENT DATE: 20180601
